FAERS Safety Report 5008855-7 (Version None)
Quarter: 2006Q2

REPORT INFORMATION
  Report Type: 
  Country: None (occurrence: None)
  Receive Date: 20060519
  Receipt Date: 20060505
  Transmission Date: 20061013
  Serious: Yes (Hospitalization)
  Sender: FDA-Public Use
  Company Number: 2006RR-02217

PATIENT
  Age: 43 Year
  Sex: Male

DRUGS (4)
  1. FLUOXETINE [Suspect]
     Indication: DEPRESSION
     Dosage: 20  MG
  2. ARIPIPRAZOLE(ARIPIPRAZOLE) [Suspect]
     Indication: DEPRESSION
     Dosage: 30 MG
  3. RISPERIDONE(RISPERIDONE) TABLET, 1MG [Suspect]
     Indication: DEPRESSION
     Dosage: 1 MG
  4. BUPROPION [Concomitant]

REACTIONS (6)
  - BLOOD PRESSURE FLUCTUATION [None]
  - DRUG INTERACTION [None]
  - NEUROLEPTIC MALIGNANT SYNDROME [None]
  - PSYCHOMOTOR RETARDATION [None]
  - SEROTONIN SYNDROME [None]
  - TACHYCARDIA [None]
